FAERS Safety Report 5781683-0 (Version None)
Quarter: 2008Q2

REPORT INFORMATION
  Report Type: 
  Country: None (occurrence: None)
  Receive Date: 20080619
  Receipt Date: 20080616
  Transmission Date: 20081010
  Serious: Yes (Other)
  Sender: FDA-Public Use
  Company Number: 2008SP011793

PATIENT
  Age: 22 Year
  Sex: Female

DRUGS (1)
  1. CORICIDIN [Suspect]
     Indication: DEPENDENCE

REACTIONS (1)
  - DRUG DEPENDENCE [None]
